FAERS Safety Report 16026143 (Version 1)
Quarter: 2019Q1

REPORT INFORMATION
  Report Type: Spontaneous
  Country: US (occurrence: US)
  Receive Date: 20190302
  Receipt Date: 20190302
  Transmission Date: 20190418
  Serious: No
  Sender: FDA-Public Use
  Company Number: US-NOVOPROD-610700

PATIENT
  Sex: Female

DRUGS (1)
  1. VICTOZA [Suspect]
     Active Substance: LIRAGLUTIDE
     Indication: PRODUCT USED FOR UNKNOWN INDICATION
     Dosage: UNK
     Route: 058

REACTIONS (9)
  - Injection site vesicles [Unknown]
  - Injection site extravasation [Unknown]
  - Alopecia [Unknown]
  - Malaise [Unknown]
  - Injection site bruising [Unknown]
  - Product quality issue [Unknown]
  - Needle issue [Unknown]
  - Product complaint [Unknown]
  - Injection site reaction [Unknown]
